FAERS Safety Report 7900507-6 (Version None)
Quarter: 2011Q4

REPORT INFORMATION
  Report Type: 
  Country: None (occurrence: None)
  Receive Date: 20111108
  Receipt Date: 20111102
  Transmission Date: 20120403
  Serious: Yes (Death, Hospitalization)
  Sender: FDA-Public Use
  Company Number: NL-BRISTOL-MYERS SQUIBB COMPANY-16212193

PATIENT
  Age: 55 Year
  Sex: Male

DRUGS (8)
  1. ETOPOSIDE [Suspect]
     Indication: NON-HODGKIN'S LYMPHOMA
     Dates: start: 20110530
  2. LOMUSTINE [Suspect]
     Indication: NON-HODGKIN'S LYMPHOMA
     Dosage: 1DF: SINGLE DOSE.
     Dates: start: 20110530
  3. BISACODYL [Concomitant]
  4. RITUXIMAB [Suspect]
     Indication: NON-HODGKIN'S LYMPHOMA
     Dosage: 1DF: SINGLE DOSE.
     Dates: start: 20110530
  5. OXYCODONE HCL [Concomitant]
  6. PREDNISONE [Concomitant]
  7. FLUCONAZOLE [Concomitant]
  8. CHLORAMBUCIL [Suspect]
     Indication: NON-HODGKIN'S LYMPHOMA
     Dates: start: 20110530

REACTIONS (2)
  - PNEUMONIA KLEBSIELLA [None]
  - NEOPLASM MALIGNANT [None]
